FAERS Safety Report 8268077-3 (Version None)
Quarter: 2012Q2

REPORT INFORMATION
  Report Type: 
  Country: None (occurrence: None)
  Receive Date: 20120409
  Receipt Date: 20120402
  Transmission Date: 20120825
  Serious: Yes (Other)
  Sender: FDA-Public Use
  Company Number: DE-UCBSA-054560

PATIENT
  Sex: Female

DRUGS (2)
  1. CIMZIA [Suspect]
     Route: 058
     Dates: start: 20110101
  2. IBUPROFEN [Concomitant]
     Indication: PAIN

REACTIONS (4)
  - OEDEMA PERIPHERAL [None]
  - BLOOD PRESSURE INCREASED [None]
  - HEPATIC STEATOSIS [None]
  - EXTRASYSTOLES [None]
